FAERS Safety Report 7769054-9 (Version None)
Quarter: 2011Q3

REPORT INFORMATION
  Report Type: 
  Country: None (occurrence: None)
  Receive Date: 20110922
  Receipt Date: 20100412
  Transmission Date: 20111222
  Serious: Yes (Other)
  Sender: FDA-Public Use
  Company Number: US-ASTRAZENECA-2009UW18738

PATIENT
  Age: 18016 Day
  Sex: Female

DRUGS (18)
  1. THEOPHYLLINE [Concomitant]
     Dates: start: 20060530
  2. CYMBALTA [Concomitant]
     Dosage: 30-60 MG
     Dates: start: 20060612
  3. OMEPRAZOLE [Concomitant]
     Dates: start: 20061019
  4. LYRICA [Concomitant]
     Dates: start: 20061218
  5. WELLBUTRIN [Concomitant]
     Dates: start: 20060903
  6. LAMICTAL [Concomitant]
     Dates: start: 20060903
  7. AMITRIPTYLINE HCL [Concomitant]
     Dosage: 50
  8. SEROQUEL [Suspect]
     Route: 048
     Dates: start: 20060903
  9. SINGULAIR [Concomitant]
     Dates: start: 20060426
  10. DIAZEPAM [Concomitant]
     Dates: start: 20061213
  11. GABAPENTIN [Concomitant]
     Dates: start: 20061214
  12. ENALAPRIL MALEATE [Concomitant]
     Dates: start: 20060612
  13. FLUTICASONE PROPIONATE [Concomitant]
     Dosage: 50 MCG
     Dates: start: 20060426
  14. METOPROLOL TARTRATE [Concomitant]
     Dates: start: 20060612
  15. MORPHINE SULFATE [Concomitant]
     Dates: start: 20061226
  16. HYDROCODONE BITARTRATE AND ACETAMINOPHEN [Concomitant]
     Dosage: 10-500
     Dates: start: 20061218
  17. ALPRAZOLAM [Concomitant]
     Dates: start: 20061226
  18. PROTONIX [Concomitant]
     Dates: start: 20061226

REACTIONS (2)
  - DIABETES MELLITUS [None]
  - DIABETIC COMA [None]
